FAERS Safety Report 5268010-2 (Version None)
Quarter: 2007Q1

REPORT INFORMATION
  Report Type: 
  Country: None (occurrence: None)
  Receive Date: 20061213
  Receipt Date: 20040730
  Transmission Date: 20070707
  Serious: Yes (Other)
  Sender: FDA-Public Use
  Company Number: 2004UW16259

PATIENT
  Sex: Male
  Weight: 106.5953 kg

DRUGS (4)
  1. IRESSA [Suspect]
     Indication: LUNG NEOPLASM MALIGNANT
  2. COUMADIN [Concomitant]
  3. AMBIEN [Concomitant]
  4. LOPRESSOR [Concomitant]

REACTIONS (1)
  - BLOOD GLUCOSE INCREASED [None]
